FAERS Safety Report 7412831-4 (Version None)
Quarter: 2011Q2

REPORT INFORMATION
  Report Type: 
  Country: None (occurrence: None)
  Receive Date: 20110413
  Receipt Date: 20110405
  Transmission Date: 20111010
  Serious: Yes (Life-Threatening)
  Sender: FDA-Public Use
  Company Number: B0711745A

PATIENT
  Sex: Male
  Weight: 59 kg

DRUGS (16)
  1. ZOSYN [Concomitant]
     Dosage: 13.5G PER DAY
     Route: 042
     Dates: start: 20100410, end: 20100424
  2. TOBRACIN [Concomitant]
     Dosage: 120MG PER DAY
     Dates: start: 20100405, end: 20100524
  3. OMEGACIN [Concomitant]
     Dosage: .9G PER DAY
     Route: 042
     Dates: start: 20100402, end: 20100410
  4. CIPROFLOXACIN HCL [Concomitant]
     Dosage: 600MG PER DAY
     Route: 042
     Dates: start: 20100411, end: 20100426
  5. LANSOPRAZOLE [Concomitant]
     Dosage: 15MG PER DAY
     Route: 048
     Dates: start: 20100403, end: 20100424
  6. PROGRAF [Suspect]
     Indication: IMMUNOSUPPRESSION
     Dosage: .58MG PER DAY
     Route: 065
     Dates: start: 20100412, end: 20100428
  7. DEPAS [Concomitant]
     Dosage: .5MG PER DAY
     Route: 048
     Dates: start: 20100401, end: 20100629
  8. FLUDARA [Concomitant]
     Indication: CORD BLOOD TRANSPLANT THERAPY
     Dosage: 40MG PER DAY
     Route: 042
     Dates: start: 20100406, end: 20100410
  9. VFEND [Concomitant]
     Dosage: 400MG PER DAY
     Route: 042
     Dates: start: 20100407, end: 20100719
  10. PREDONINE [Concomitant]
     Dosage: 30MG PER DAY
     Dates: start: 20100319, end: 20100720
  11. ACIROVEC [Concomitant]
     Dosage: 750MG PER DAY
     Route: 042
     Dates: start: 20100404, end: 20100420
  12. ALKERAN [Suspect]
     Indication: CORD BLOOD TRANSPLANT THERAPY
     Dosage: 63MGM2 PER DAY
     Route: 042
     Dates: start: 20100410, end: 20100411
  13. PROGRAF [Suspect]
     Dosage: .58MG PER DAY
     Route: 065
     Dates: start: 20100614, end: 20100712
  14. URSO 250 [Concomitant]
     Dosage: 600MG PER DAY
     Route: 048
     Dates: start: 20100310, end: 20100423
  15. POLYMYXIN-B-SULFATE [Concomitant]
     Dosage: 3IUAX PER DAY
     Route: 048
     Dates: start: 20100319, end: 20100423
  16. TEICOPLANIN [Concomitant]
     Dosage: 400MG PER DAY
     Route: 042
     Dates: start: 20100403, end: 20100410

REACTIONS (6)
  - ADENOVIRAL HAEMORRHAGIC CYSTITIS [None]
  - RENAL FAILURE ACUTE [None]
  - SEPSIS [None]
  - STOMATITIS [None]
  - RENAL IMPAIRMENT [None]
  - ENTEROVESICAL FISTULA [None]
